FAERS Safety Report 5448764-2 (Version None)
Quarter: 2007Q3

REPORT INFORMATION
  Report Type: 
  Country: None (occurrence: None)
  Receive Date: 20070911
  Receipt Date: 20070605
  Transmission Date: 20080115
  Serious: No
  Sender: FDA-Public Use
  Company Number: US-BRISTOL-MYERS SQUIBB COMPANY-13564026

PATIENT
  Age: 57 Year
  Sex: Female
  Weight: 52 kg

DRUGS (5)
  1. EMSAM [Suspect]
     Indication: DEPRESSION
     Route: 061
     Dates: start: 20060101
  2. XANAX [Concomitant]
  3. ESTROGEN [Concomitant]
  4. KLONOPIN [Concomitant]
  5. VAGIFEM [Concomitant]

REACTIONS (1)
  - APPLICATION SITE REACTION [None]
